FAERS Safety Report 10610717 (Version 2)
Quarter: 2014Q4

REPORT INFORMATION
  Report Type: Spontaneous
  Country: US (occurrence: US)
  Receive Date: 20141126
  Receipt Date: 20141126
  Transmission Date: 20150529
  Serious: Yes (Hospitalization)
  Sender: FDA-Public Use
  Company Number: US-MALLINCKRODT-T201403814

PATIENT
  Age: 33 Year
  Sex: Male

DRUGS (1)
  1. GABLOFEN [Suspect]
     Active Substance: BACLOFEN
     Indication: MUSCLE SPASTICITY
     Dosage: 600.8 MCG/DAY
     Route: 037

REACTIONS (7)
  - Gait disturbance [Unknown]
  - Bacterial infection [Unknown]
  - Hallucination [Unknown]
  - Paranoia [Not Recovered/Not Resolved]
  - Hypotonia [Unknown]
  - Hyperhidrosis [Unknown]
  - Swelling [Unknown]

NARRATIVE: CASE EVENT DATE: 201410
